FAERS Safety Report 10610350 (Version 2)
Quarter: 2015Q2

REPORT INFORMATION
  Report Type: Spontaneous
  Country: JP (occurrence: JP)
  Receive Date: 20141126
  Receipt Date: 20150505
  Transmission Date: 20150821
  Serious: Yes (Death)
  Sender: FDA-Public Use
  Company Number: JP-TEVA-525470ISR

PATIENT
  Age: 45 Year
  Sex: Male
  Weight: 59 kg

DRUGS (15)
  1. ELPLAT [Concomitant]
     Active Substance: OXALIPLATIN
     Indication: COLORECTAL CANCER
     Dosage: 140 MG
     Route: 051
     Dates: start: 20140904, end: 20140915
  2. CELECOX [Concomitant]
     Active Substance: CELECOXIB
     Indication: CANCER PAIN
     Dosage: 400 MG
     Route: 048
     Dates: start: 20140908, end: 20140914
  3. AVASTIN [Concomitant]
     Active Substance: BEVACIZUMAB
     Indication: COLORECTAL CANCER
     Dosage: 290 MG
     Route: 051
     Dates: start: 20140904, end: 20140915
  4. FENTOS [Concomitant]
     Active Substance: FENTANYL
     Indication: CANCER PAIN
     Dosage: 4 MG
     Route: 062
     Dates: start: 20140904, end: 20140911
  5. LYRICA [Concomitant]
     Active Substance: PREGABALIN
     Indication: CANCER PAIN
     Dosage: 300 MG
     Route: 048
     Dates: start: 20140826, end: 20140910
  6. FUROSEMIDE. [Concomitant]
     Active Substance: FUROSEMIDE
     Indication: OEDEMA
     Dosage: 10 MG
     Route: 048
     Dates: start: 20140909, end: 20140914
  7. E-FEN BUCCAL [Suspect]
     Active Substance: FENTANYL CITRATE
     Indication: BREAKTHROUGH PAIN
     Dosage: 100 MICROGRAM DAILY;
     Route: 002
     Dates: start: 20140910, end: 20140910
  8. LYRICA [Concomitant]
     Active Substance: PREGABALIN
     Dosage: 150 MG
     Route: 048
     Dates: start: 20140911, end: 20140914
  9. TSUMURA JUZENTAIHOTO EXTRACT GRANULES FOR ETHICAL USE [Concomitant]
     Indication: MALAISE
     Dosage: 7.5 G
     Route: 048
     Dates: start: 20140905, end: 20140914
  10. SOLACET D [Concomitant]
     Dosage: 500 ML
     Route: 041
     Dates: start: 20140906, end: 20140910
  11. FENTOS [Concomitant]
     Active Substance: FENTANYL
     Dosage: 3 MG
     Route: 062
     Dates: start: 20140912, end: 20140915
  12. LEVOFOLINATE [Concomitant]
     Active Substance: LEVOLEUCOVORIN CALCIUM
     Indication: COLORECTAL CANCER
     Dosage: 325 MG
     Route: 051
     Dates: start: 20140904, end: 20140915
  13. ZYPREXA [Concomitant]
     Active Substance: OLANZAPINE
     Indication: NAUSEA
     Dosage: 5 MG
     Route: 048
     Dates: start: 20140826, end: 20140914
  14. 5-FU [Concomitant]
     Active Substance: FLUOROURACIL
     Indication: COLORECTAL CANCER
     Dosage: 660 MG + 3990 MG
     Route: 051
     Dates: start: 20140904, end: 20140915
  15. KN NO.3 [Concomitant]
     Dosage: 200 ML
     Route: 041
     Dates: start: 20140909, end: 20140911

REACTIONS (3)
  - Somnolence [Recovering/Resolving]
  - Colorectal cancer [Fatal]
  - Nausea [Not Recovered/Not Resolved]

NARRATIVE: CASE EVENT DATE: 20140910
